FAERS Safety Report 24640932 (Version 1)
Quarter: 2024Q4

REPORT INFORMATION
  Report Type: Report from Study
  Country: ES (occurrence: ES)
  Receive Date: 20241120
  Receipt Date: 20241120
  Transmission Date: 20250115
  Serious: Yes (Hospitalization)
  Sender: Y-MABS THERAPEUTICS
  Company Number: ES-Y-MABS THERAPEUTICS, INC.-COM2021-ES-000484

PATIENT

DRUGS (13)
  1. NAXITAMAB [Suspect]
     Active Substance: NAXITAMAB
     Indication: Neuroblastoma
     Dosage: 2.5 MILLIGRAM/KILOGRAM, CYCLE 1, DOSE 1
     Route: 042
     Dates: start: 20210823, end: 20210823
  2. NAXITAMAB [Suspect]
     Active Substance: NAXITAMAB
     Dosage: 2.5 MILLIGRAM/KILOGRAM, CYCLE 1, DOSE 3
     Route: 042
     Dates: start: 20210830, end: 20210830
  3. NAXITAMAB [Suspect]
     Active Substance: NAXITAMAB
     Dosage: 2.5 MILLIGRAM/KILOGRAM, CYCLE 1, DOSE 4
     Route: 042
     Dates: start: 20210901, end: 20210901
  4. GRANULOCYTE-MACROPHAGE COLONY-STIMULATING FACTOR [Suspect]
     Active Substance: GRANULOCYTE-MACROPHAGE COLONY-STIMULATING FACTOR
     Indication: Neuroblastoma
     Dosage: 250 MICROGRAM PER CUBIC METRE, CYCLE 1
     Route: 058
     Dates: start: 20210828, end: 20210828
  5. GRANULOCYTE-MACROPHAGE COLONY-STIMULATING FACTOR [Suspect]
     Active Substance: GRANULOCYTE-MACROPHAGE COLONY-STIMULATING FACTOR
     Dosage: 250 MICROGRAM PER CUBIC METRE, CYCLE 1, DOSE 3
     Route: 058
     Dates: start: 20210830, end: 20210830
  6. GABAPENTIN [Concomitant]
     Active Substance: GABAPENTIN
     Indication: Product used for unknown indication
     Dosage: 1.7 MILLILITER, QD
     Dates: start: 20210819, end: 20210819
  7. GABAPENTIN [Concomitant]
     Active Substance: GABAPENTIN
     Dosage: 1.7 MILLILITER, BID
     Dates: start: 20210820, end: 20210820
  8. GABAPENTIN [Concomitant]
     Active Substance: GABAPENTIN
     Dosage: 1.7 MILLITIER, TID
     Route: 048
     Dates: start: 20210821, end: 20210901
  9. GABAPENTIN [Concomitant]
     Active Substance: GABAPENTIN
     Dosage: 1.7 MILLILITER, BID
     Dates: start: 20210902, end: 20210902
  10. SULFAMETHOXAZOLE\TRIMETHOPRIM [Concomitant]
     Active Substance: SULFAMETHOXAZOLE\TRIMETHOPRIM
     Indication: Product used for unknown indication
     Dosage: 5 MILLILITER, BID. ONLY FRIDAYS, SATURDAYS AND SUNDAYS
     Dates: end: 20210831
  11. LORLATINIB [Concomitant]
     Active Substance: LORLATINIB
     Indication: Product used for unknown indication
     Dosage: 25 MILLIGRAM, BID
     Route: 048
     Dates: start: 20210817
  12. CYCLOPHOSPHAMIDE [Concomitant]
     Active Substance: CYCLOPHOSPHAMIDE
     Indication: Neuroblastoma
     Dosage: UNK
     Dates: start: 20210823, end: 20210827
  13. TOPOTECAN [Concomitant]
     Active Substance: TOPOTECAN HYDROCHLORIDE
     Indication: Neuroblastoma
     Dosage: UNK
     Dates: start: 20210823, end: 20210827

REACTIONS (1)
  - Febrile neutropenia [Recovered/Resolved]

NARRATIVE: CASE EVENT DATE: 20210830
